FAERS Safety Report 9505938 (Version 1)
Quarter: 2013Q1

REPORT INFORMATION
  Report Type: Spontaneous
  Country: US (occurrence: None)
  Receive Date: 20130305
  Receipt Date: 20130305
  Transmission Date: 20140127
  Serious: No
  Sender: FDA-Public Use
  Company Number: 1000039859

PATIENT
  Age: 71 Year
  Sex: Male

DRUGS (15)
  1. DALIRESP [Suspect]
     Indication: CHRONIC OBSTRUCTIVE PULMONARY DISEASE
     Dosage: 500 MCG EVERY OTHER DAY (500 MCG, 1 IN 2 D), ORAL?
     Dates: start: 20121001, end: 201210
  2. LASIX (LASIX) (LASIX) [Concomitant]
  3. SPIRONOLACTONE (SPIRONOLACTONE) [Concomitant]
  4. SPIRIVA (TIOTROPIUM BROMIDE) [Concomitant]
  5. FORADIL (FORMOTEROL FUMARATE) [Concomitant]
  6. AMLODIPINE (AMLODIPINE) [Concomitant]
  7. FINASTERIDE (FINASTERIDE) [Concomitant]
  8. FLOMAX (FLOMAX) [Concomitant]
  9. PRAVASTATIN (PRAVASTATIN) [Concomitant]
  10. AZOPT (BRINZOLAMIDE) [Concomitant]
  11. LUMIGAN (BIMATOPROST) [Concomitant]
  12. OMERPRAZOLE (OMEPRAZOLE) [Concomitant]
  13. METOPROLOL (METOPROLOL) [Concomitant]
  14. FOSAMAX (ALENDRONATE SODIUM) [Concomitant]
  15. LEVOFLOXACIN (LEVOFLOXACIN) [Concomitant]

REACTIONS (3)
  - Diarrhoea [None]
  - Insomnia [None]
  - Influenza like illness [None]
